FAERS Safety Report 23735649 (Version 1)
Quarter: 2024Q2

REPORT INFORMATION
  Report Type: Report from Study
  Country: TW (occurrence: None)
  Receive Date: 20240412
  Receipt Date: 20240412
  Transmission Date: 20240716
  Serious: Yes (Death)
  Sender: FDA-Public Use
  Company Number: 2023A027088

PATIENT
  Age: 68 Year
  Sex: Male

DRUGS (1)
  1. IMFINZI [Suspect]
     Active Substance: DURVALUMAB
     Dosage: 1440.0MG UNKNOWN
     Route: 042
     Dates: start: 20230110, end: 20230123

REACTIONS (2)
  - Nasopharyngitis [Fatal]
  - Multisystem inflammatory syndrome [Fatal]
